FAERS Safety Report 26201344 (Version 1)
Quarter: 2025Q4

REPORT INFORMATION
  Report Type: Spontaneous
  Country: US (occurrence: US)
  Receive Date: 20251226
  Receipt Date: 20251226
  Transmission Date: 20260117
  Serious: No
  Sender: BAUSCH AND LOMB
  Company Number: US-BAUSCHBL-2025BNL034252

PATIENT
  Age: 55 Year
  Sex: Female

DRUGS (2)
  1. MIEBO [Suspect]
     Active Substance: PERFLUOROHEXYLOCTANE
     Indication: Product used for unknown indication
     Route: 047
  2. ARTIFICIAL TEARS [Concomitant]
     Indication: Product used for unknown indication
     Route: 065

REACTIONS (1)
  - Conjunctival haemorrhage [Unknown]
